FAERS Safety Report 5312959-9 (Version None)
Quarter: 2007Q2

REPORT INFORMATION
  Report Type: 
  Country: None (occurrence: None)
  Receive Date: 20070430
  Receipt Date: 20070420
  Transmission Date: 20071010
  Serious: Yes (Hospitalization, Other)
  Sender: FDA-Public Use
  Company Number: US-AMGEN-US220712

PATIENT
  Sex: Male

DRUGS (12)
  1. EPOGEN [Suspect]
     Indication: DIALYSIS
     Route: 042
     Dates: start: 20050801, end: 20070307
  2. ZETIA [Concomitant]
  3. NEPHRO-CAPS [Concomitant]
  4. LIPITOR [Concomitant]
  5. KEPPRA [Concomitant]
  6. MINOXIDIL [Concomitant]
  7. AMBIEN [Concomitant]
  8. SENSIPAR [Concomitant]
  9. TOPROL-XL [Concomitant]
  10. NEXIUM [Concomitant]
  11. TRENTAL [Concomitant]
  12. DALMANE [Concomitant]

REACTIONS (3)
  - BLOOD ERYTHROPOIETIN INCREASED [None]
  - GASTROINTESTINAL HAEMORRHAGE [None]
  - KIDNEY TRANSPLANT REJECTION [None]
